FAERS Safety Report 4511100-X (Version None)
Quarter: 2004Q4

REPORT INFORMATION
  Report Type: 
  Country: None (occurrence: None)
  Receive Date: 20041015
  Receipt Date: 20040218
  Transmission Date: 20050328
  Serious: Yes (Other)
  Sender: FDA-Public Use
  Company Number: 2004003996

PATIENT
  Age: 60 Year
  Sex: Male

DRUGS (4)
  1. NEURONTIN [Suspect]
     Indication: BIPOLAR DISORDER
     Dosage: 900 MG (APPROXIMATELY 900MG QD), ORAL
     Route: 048
     Dates: start: 20030601
  2. NEURONTIN [Suspect]
     Indication: INSOMNIA
     Dosage: 900 MG (APPROXIMATELY 900MG QD), ORAL
     Route: 048
     Dates: start: 20030601
  3. ZOLPIDEM TARTRATE [Concomitant]
  4. HYDROMORPHONE HCL [Concomitant]

REACTIONS (7)
  - AMNESIA [None]
  - CONFUSIONAL STATE [None]
  - DELIRIUM [None]
  - DROOLING [None]
  - HALLUCINATION [None]
  - INFLUENZA [None]
  - SPEECH DISORDER [None]
